FAERS Safety Report 17692521 (Version 2)
Quarter: 2020Q2

REPORT INFORMATION
  Report Type: Report from Study
  Country: CN (occurrence: CN)
  Receive Date: 20200422
  Receipt Date: 20200423
  Transmission Date: 20200714
  Serious: Yes (Hospitalization)
  Sender: FDA-Public Use
  Company Number: CN-BAYER-2020-054771

PATIENT
  Age: 64 Year
  Sex: Male

DRUGS (2)
  1. NEXAVAR [Suspect]
     Active Substance: SORAFENIB
     Indication: RENAL CELL CARCINOMA
     Dosage: 400 MG, BID
     Route: 048
  2. NEXAVAR [Suspect]
     Active Substance: SORAFENIB
     Indication: HEPATOCELLULAR CARCINOMA
     Dosage: 600 MG, BID
     Route: 048
     Dates: start: 20110609

REACTIONS (6)
  - Diarrhoea [None]
  - Incorrect product administration duration [None]
  - Cerebral infarction [None]
  - Off label use [None]
  - Myocardial infarction [None]
  - Decreased appetite [None]

NARRATIVE: CASE EVENT DATE: 20110609
